FAERS Safety Report 5090941-7 (Version None)
Quarter: 2006Q3

REPORT INFORMATION
  Report Type: 
  Country: None (occurrence: None)
  Receive Date: 20060823
  Receipt Date: 20060807
  Transmission Date: 20061208
  Serious: Yes (Hospitalization)
  Sender: FDA-Public Use
  Company Number: 8018067

PATIENT
  Age: 69 Year
  Sex: Male
  Weight: 68 kg

DRUGS (12)
  1. KEPPRA [Suspect]
     Indication: CONVULSION PROPHYLAXIS
     Dosage: 500 MG 2/D PO
     Route: 048
     Dates: start: 20060621, end: 20060627
  2. KEPPRA [Suspect]
     Indication: CONVULSION PROPHYLAXIS
     Dosage: 1000 MG 2/D PO
     Route: 048
     Dates: start: 20060628, end: 20060701
  3. HYDRALAZINE [Concomitant]
  4. ISOSORBIDE DINITRATE [Concomitant]
  5. COREG [Concomitant]
  6. LASIX [Concomitant]
  7. NEXIUM [Concomitant]
  8. ASPIRIN [Concomitant]
  9. SENOKOT [Concomitant]
  10. FLOMAX [Concomitant]
  11. LIPITOR [Concomitant]
  12. TRAZODONE HCL [Concomitant]

REACTIONS (9)
  - AGITATION [None]
  - AMNESIA [None]
  - CONFUSIONAL STATE [None]
  - DRUG TOXICITY [None]
  - FATIGUE [None]
  - LIVER DISORDER [None]
  - PARANOIA [None]
  - URINARY TRACT INFECTION [None]
  - WEIGHT DECREASED [None]
